FAERS Safety Report 4582596-2 (Version None)
Quarter: 2005Q1

REPORT INFORMATION
  Report Type: 
  Country: None (occurrence: None)
  Receive Date: 20050211
  Receipt Date: 20050211
  Transmission Date: 20050727
  Serious: Yes (Death)
  Sender: FDA-Public Use
  Company Number: None

PATIENT
  Age: 71 Year
  Sex: Female

DRUGS (4)
  1. IRINOTECAN HCL [Suspect]
     Indication: RECTAL CANCER
     Dosage: 50 MG/M2 IV/HR
     Route: 042
     Dates: start: 20041117
  2. IRINOTECAN HCL [Suspect]
     Indication: RECTAL CANCER
     Dosage: 50 MG/M2 IV/HR
     Route: 042
     Dates: start: 20041124
  3. IRINOTECAN HCL [Suspect]
     Indication: RECTAL CANCER
     Dosage: 50 MG/M2 IV/HR
     Route: 042
     Dates: start: 20041201
  4. CAPECITABINE [Suspect]
     Indication: RECTAL CANCER
     Dosage: 2500 MG DAILY
     Dates: start: 20041117

REACTIONS (3)
  - CARDIAC ARREST [None]
  - MULTI-ORGAN FAILURE [None]
  - SEPSIS SYNDROME [None]
